FAERS Safety Report 10031889 (Version 1)
Quarter: 2014Q1

REPORT INFORMATION
  Report Type: Spontaneous
  Country: US (occurrence: US)
  Receive Date: 20140324
  Receipt Date: 20140324
  Transmission Date: 20141002
  Serious: No
  Sender: FDA-Public Use
  Company Number: US-009507513-1403USA002665

PATIENT
  Age: 20 Year
  Sex: Male
  Weight: 56.69 kg

DRUGS (4)
  1. CLARITIN-D-12 [Suspect]
     Indication: RHINORRHOEA
     Dosage: 20 MG, ONCE
     Route: 048
     Dates: start: 20140223
  2. CLARITIN-D-12 [Suspect]
     Indication: EYE PRURITUS
  3. CLARITIN-D-12 [Suspect]
     Indication: LACRIMATION INCREASED
  4. CLARITIN-D-12 [Suspect]
     Indication: SNEEZING

REACTIONS (1)
  - Overdose [Unknown]
